FAERS Safety Report 23428816 (Version 1)
Quarter: 2024Q1

REPORT INFORMATION
  Report Type: Spontaneous
  Country: CN (occurrence: CN)
  Receive Date: 20240122
  Receipt Date: 20240122
  Transmission Date: 20240409
  Serious: Yes (Other)
  Sender: FDA-Public Use
  Company Number: CN-PFIZER INC-PV202400007449

PATIENT
  Age: 36 Year
  Sex: Male

DRUGS (3)
  1. TIGECYCLINE [Suspect]
     Active Substance: TIGECYCLINE
     Indication: Anti-infective therapy
     Dosage: UNK
     Dates: start: 20231229
  2. FOSFOMYCIN [Concomitant]
     Active Substance: FOSFOMYCIN
     Indication: Anti-infective therapy
     Dosage: UNK
  3. POLYMYXIN [Concomitant]
     Active Substance: POLYMYXIN
     Indication: Anti-infective therapy
     Dosage: UNK

REACTIONS (4)
  - Pneumoperitoneum [Unknown]
  - Cholestasis [Unknown]
  - Pneumonitis [Unknown]
  - Atelectasis [Unknown]

NARRATIVE: CASE EVENT DATE: 20240103
